FAERS Safety Report 24292646 (Version 3)
Quarter: 2024Q3

REPORT INFORMATION
  Report Type: Spontaneous
  Country: US (occurrence: US)
  Receive Date: 20240906
  Receipt Date: 20240915
  Transmission Date: 20241017
  Serious: No
  Sender: SUNOVION
  Company Number: US-SUMITOMO PHARMA SWITZERLAND GMBH-2024SPA002247

PATIENT

DRUGS (3)
  1. ORGOVYX [Suspect]
     Active Substance: RELUGOLIX
     Indication: Prostate cancer
     Dosage: 120 MG, HS
     Route: 048
     Dates: start: 20240826
  2. DILTIAZEM [Suspect]
     Active Substance: DILTIAZEM
     Indication: Atrial fibrillation
     Dosage: 60 MG
     Route: 065
     Dates: start: 2023
  3. DILTIAZEM [Suspect]
     Active Substance: DILTIAZEM
     Indication: Cardiac disorder

REACTIONS (5)
  - Nasopharyngitis [Unknown]
  - Blood pressure fluctuation [Unknown]
  - Dysphemia [Unknown]
  - Arthralgia [Unknown]
  - Hypertension [Unknown]
